FAERS Safety Report 10164168 (Version 1)
Quarter: 2014Q2

REPORT INFORMATION
  Report Type: Spontaneous
  Country: US (occurrence: US)
  Receive Date: 20140510
  Receipt Date: 20140510
  Transmission Date: 20141212
  Serious: No
  Sender: FDA-Public Use
  Company Number: US-BRISTOL-MYERS SQUIBB COMPANY-20007589

PATIENT
  Age: 70 Year
  Sex: Male
  Weight: 120.18 kg

DRUGS (5)
  1. BYDUREON [Suspect]
     Indication: TYPE 2 DIABETES MELLITUS
     Dosage: EXPIRATION DATE:APR2016
     Route: 058
     Dates: start: 2013
  2. PREDNISONE [Concomitant]
  3. METFORMIN [Concomitant]
  4. VITAMIN E [Concomitant]
  5. VITAMIN B12 [Concomitant]

REACTIONS (4)
  - Injection site nodule [Unknown]
  - Injection site extravasation [Unknown]
  - Underdose [Unknown]
  - Product quality issue [Unknown]
